FAERS Safety Report 23499690 (Version 1)
Quarter: 2024Q1

REPORT INFORMATION
  Report Type: Spontaneous
  Country: US (occurrence: US)
  Receive Date: 20240208
  Receipt Date: 20240208
  Transmission Date: 20240409
  Serious: No
  Sender: FDA-Public Use
  Company Number: US-ADVANZ PHARMA-202401000314

PATIENT

DRUGS (2)
  1. PHENOXYBENZAMINE [Suspect]
     Active Substance: PHENOXYBENZAMINE
     Indication: Product used for unknown indication
     Dosage: UNK
     Route: 065
  2. PHENOXYBENZAMINE [Suspect]
     Active Substance: PHENOXYBENZAMINE
     Dosage: UNK (DOUBLED UP DAILY DOSE)
     Route: 065

REACTIONS (1)
  - Dizziness [Recovering/Resolving]
